FAERS Safety Report 24314693 (Version 1)
Quarter: 2024Q3

REPORT INFORMATION
  Report Type: Spontaneous
  Country: CN (occurrence: CN)
  Receive Date: 20240913
  Receipt Date: 20240913
  Transmission Date: 20241016
  Serious: Yes (Other)
  Sender: ROCHE
  Company Number: CN-ROCHE-10000079940

PATIENT
  Age: 45 Year
  Sex: Female
  Weight: 47 kg

DRUGS (2)
  1. ADO-TRASTUZUMAB EMTANSINE [Suspect]
     Active Substance: ADO-TRASTUZUMAB EMTANSINE
     Indication: Breast cancer
     Route: 042
     Dates: start: 20240808, end: 20240808
  2. SODIUM CHLORIDE [Concomitant]
     Active Substance: SODIUM CHLORIDE

REACTIONS (2)
  - Platelet count decreased [Recovered/Resolved]
  - Myelosuppression [Unknown]

NARRATIVE: CASE EVENT DATE: 20240813
